FAERS Safety Report 6648407-6 (Version None)
Quarter: 2010Q1

REPORT INFORMATION
  Report Type: 
  Country: None (occurrence: None)
  Receive Date: 20100324
  Receipt Date: 20100318
  Transmission Date: 20100710
  Serious: Yes (Hospitalization)
  Sender: FDA-Public Use
  Company Number: PL-ROCHE-692293

PATIENT
  Sex: Female
  Weight: 58 kg

DRUGS (4)
  1. BONIVA [Suspect]
     Indication: OSTEOPOROSIS
     Dosage: DOSE: 150, UNIT NOT PROVIDED.
     Route: 048
     Dates: start: 20090601, end: 20091201
  2. VIGANTOL [Concomitant]
     Indication: OSTEOPOROSIS
     Dosage: START DATE: 17 MARCH, FREQ: 1X.
     Route: 048
  3. VITRUM [Concomitant]
     Indication: OSTEOPOROSIS
     Dosage: DRUG NAME: VITRUM CALCIUM.
     Route: 048
  4. AMLOPIN [Concomitant]
     Indication: HYPERTENSION
     Dosage: DRUG NAME: AMLOPIN 5, DOSE: 1X, FREQ: 1X.
     Route: 048

REACTIONS (2)
  - CUTANEOUS LUPUS ERYTHEMATOSUS [None]
  - ERYTHEMA [None]
